FAERS Safety Report 16152612 (Version 2)
Quarter: 2019Q4

REPORT INFORMATION
  Report Type: Spontaneous
  Country: US (occurrence: US)
  Receive Date: 20190403
  Receipt Date: 20191001
  Transmission Date: 20200122
  Serious: No
  Sender: FDA-Public Use
  Company Number: US-SPARK THERAPEUTICS, INC.-US-SPK-19-00005

PATIENT
  Age: 3 Year
  Sex: Female

DRUGS (8)
  1. LUXTURNA [Suspect]
     Active Substance: VORETIGENE NEPARVOVEC-RZYL
     Dosage: IN THE LEFT EYE (OS)
     Route: 031
     Dates: start: 20181016, end: 20181016
  2. LUXTURNA [Suspect]
     Active Substance: VORETIGENE NEPARVOVEC-RZYL
     Indication: RETINAL DYSTROPHY
     Dosage: IN THE RIGHT EYE
     Dates: start: 20181009, end: 20181009
  3. ATROPINE. [Concomitant]
     Active Substance: ATROPINE
     Indication: PRODUCT USED FOR UNKNOWN INDICATION
     Dosage: TO THE LEFT EYE (OS)
  4. LUXTURNA [Suspect]
     Active Substance: VORETIGENE NEPARVOVEC-RZYL
     Dosage: IN THE LEFT EYE
     Dates: start: 20181016, end: 20181016
  5. DAILY VITAMIN [Concomitant]
     Active Substance: VITAMINS
     Indication: PRODUCT USED FOR UNKNOWN INDICATION
  6. PREDNISONE. [Concomitant]
     Active Substance: PREDNISONE
     Indication: PRODUCT USED FOR UNKNOWN INDICATION
     Route: 048
  7. LUXTURNA [Suspect]
     Active Substance: VORETIGENE NEPARVOVEC-RZYL
     Indication: RETINAL DYSTROPHY
     Dosage: IN THE RIGHT EYE (OD)
     Route: 031
     Dates: start: 20181009, end: 20181009
  8. MAXITROL [Concomitant]
     Active Substance: DEXAMETHASONE\NEOMYCIN SULFATE\POLYMYXIN B SULFATE
     Indication: PRODUCT USED FOR UNKNOWN INDICATION
     Dosage: TO THE EACH EYE (OU)

REACTIONS (1)
  - Vitreous opacities [Recovered/Resolved]

NARRATIVE: CASE EVENT DATE: 20181016
